FAERS Safety Report 22376318 (Version 1)
Quarter: 2023Q2

REPORT INFORMATION
  Report Type: Spontaneous
  Country: CA (occurrence: CA)
  Receive Date: 20230527
  Receipt Date: 20230527
  Transmission Date: 20230722
  Serious: Yes (Other)
  Sender: FDA-Public Use
  Company Number: CA-STRIDES ARCOLAB LIMITED-2023SP007682

PATIENT
  Age: 41 Year
  Sex: Female
  Weight: 62 kg

DRUGS (16)
  1. PREDNISOLONE [Suspect]
     Active Substance: PREDNISOLONE
     Indication: Product used for unknown indication
     Dosage: 8 MILLIGRAM, DAILY
     Route: 048
  2. WARFARIN [Suspect]
     Active Substance: WARFARIN
     Indication: Anticoagulant therapy
     Dosage: UNK, WARFARIN ALTERNATING AT A DOSE OF 1MG AND 2MG DAILY WITH A TARGET AN INR OF 2-3
     Route: 048
  3. WARFARIN [Suspect]
     Active Substance: WARFARIN
     Dosage: UNK, DOSAGE ADJUSTMENT FOR ELEVATED INR
     Route: 048
  4. IRON [Suspect]
     Active Substance: IRON
     Indication: Iron deficiency anaemia
     Dosage: UNK (FERROUS FUMARATE)
     Route: 048
  5. IRON [Suspect]
     Active Substance: IRON
     Dosage: UNK (IRON THERAPY)
     Route: 042
  6. IRON [Suspect]
     Active Substance: IRON
     Dosage: UNK (IRON SUCROSE INFUSION)
     Route: 042
     Dates: start: 20210616
  7. IRON [Suspect]
     Active Substance: IRON
     Dosage: 16.7 MILLIGRAM/KILOGRAM, SINGLE, DOSE: 1000MG DILUTED IN 100ML SODIUM CHLORIDE, INFUSED AT A RATE 15
     Route: 042
     Dates: start: 20211102
  8. AMLODIPINE [Suspect]
     Active Substance: AMLODIPINE BESYLATE
     Indication: Product used for unknown indication
     Dosage: 10 MILLIGRAM/DAY
     Route: 048
  9. AZATHIOPRINE [Suspect]
     Active Substance: AZATHIOPRINE
     Indication: Product used for unknown indication
     Dosage: 50 MILLIGRAM/DAY
     Route: 048
  10. CALCIUM CARBONATE [Suspect]
     Active Substance: CALCIUM CARBONATE
     Indication: Product used for unknown indication
     Dosage: 500 MILLIGRAM, BID
     Route: 048
  11. CHOLECALCIFEROL [Suspect]
     Active Substance: CHOLECALCIFEROL
     Indication: Product used for unknown indication
     Dosage: 1000 INTERNATIONAL UNIT.DAY
     Route: 048
  12. CITALOPRAM [Suspect]
     Active Substance: CITALOPRAM HYDROBROMIDE
     Indication: Product used for unknown indication
     Dosage: 20 MILLIGRAM/DAY
     Route: 048
  13. LABETALOL [Suspect]
     Active Substance: LABETALOL\LABETALOL HYDROCHLORIDE
     Indication: Product used for unknown indication
     Dosage: 200 MILLIGRAM, BID
     Route: 048
  14. LEVETIRACETAM [Suspect]
     Active Substance: LEVETIRACETAM
     Indication: Product used for unknown indication
     Dosage: 500 MILLIGRAM, BID
     Route: 048
  15. MELATONIN [Suspect]
     Active Substance: MELATONIN
     Indication: Product used for unknown indication
     Dosage: 1.5 MILLIGRAM/DAY, AT BED TIME
     Route: 048
  16. SODIUM CHLORIDE [Concomitant]
     Active Substance: SODIUM CHLORIDE
     Indication: Vehicle solution use
     Dosage: UNK, FERRIC DERISOMALTOSE WAS DILUTED IN 100ML SODIUM CHLORIDE, INFUSED AT A RATE 15ML/H FOR 20 MINU
     Route: 042

REACTIONS (5)
  - Skin discolouration [Not Recovered/Not Resolved]
  - Administration site extravasation [Not Recovered/Not Resolved]
  - Infusion site pain [Unknown]
  - International normalised ratio increased [Unknown]
  - Diarrhoea [Unknown]

NARRATIVE: CASE EVENT DATE: 20210101
